FAERS Safety Report 18034159 (Version 1)
Quarter: 2020Q3

REPORT INFORMATION
  Report Type: Spontaneous
  Country: US (occurrence: US)
  Receive Date: 20200716
  Receipt Date: 20200716
  Transmission Date: 20201103
  Serious: Yes (Hospitalization, Other)
  Sender: FDA-Public Use
  Company Number: US-MALLINCKRODT-T202003456

PATIENT
  Sex: Male
  Weight: 78 kg

DRUGS (2)
  1. H.P. ACTHAR [Suspect]
     Active Substance: CORTICOTROPIN
     Indication: ARTHROPATHY
     Dosage: 1 MILLILITER, TWICE A WEEK (80 UNITS)
     Route: 058
     Dates: start: 201909
  2. H.P. ACTHAR [Suspect]
     Active Substance: CORTICOTROPIN
     Indication: ANKYLOSING SPONDYLITIS

REACTIONS (2)
  - Spinal operation [Unknown]
  - Back disorder [Unknown]
